FAERS Safety Report 24716657 (Version 2)
Quarter: 2024Q4

REPORT INFORMATION
  Report Type: Report from Study
  Country: US (occurrence: US)
  Receive Date: 20241210
  Receipt Date: 20241223
  Transmission Date: 20250114
  Serious: Yes (Hospitalization)
  Sender: AMGEN
  Company Number: US-AMGEN-USASP2024238064

PATIENT
  Age: 73 Year
  Sex: Female

DRUGS (4)
  1. REPATHA [Suspect]
     Active Substance: EVOLOCUMAB
     Indication: Thrombosis prophylaxis
     Dosage: 140 MILLIGRAM, Q2WK
     Route: 058
     Dates: start: 20241015
  2. REPATHA [Suspect]
     Active Substance: EVOLOCUMAB
     Indication: Low density lipoprotein increased
     Dosage: UNK
     Route: 058
  3. COSENTYX [Concomitant]
     Active Substance: SECUKINUMAB
  4. ASPIRIN [Concomitant]
     Active Substance: ASPIRIN

REACTIONS (5)
  - Coronary artery occlusion [Unknown]
  - Hypertension [Unknown]
  - Product dose omission issue [Unknown]
  - Device difficult to use [Unknown]
  - Product communication issue [Unknown]

NARRATIVE: CASE EVENT DATE: 20241120
